FAERS Safety Report 5934329-2 (Version None)
Quarter: 2008Q4

REPORT INFORMATION
  Report Type: 
  Country: None (occurrence: None)
  Receive Date: 20081029
  Receipt Date: 20081021
  Transmission Date: 20090506
  Serious: Yes (Hospitalization)
  Sender: FDA-Public Use
  Company Number: PHHY2008FR25567

PATIENT
  Age: 18 Year
  Sex: Female

DRUGS (4)
  1. LEPONEX [Suspect]
     Indication: PSYCHOTIC DISORDER
     Dosage: UNK
     Dates: start: 20081001, end: 20081001
  2. TRILEPTAL [Concomitant]
  3. RIVOTRIL [Concomitant]
  4. HYDREA [Concomitant]

REACTIONS (2)
  - INTESTINAL OBSTRUCTION [None]
  - MEGACOLON [None]
